FAERS Safety Report 10193397 (Version 1)
Quarter: 2014Q2

REPORT INFORMATION
  Report Type: Spontaneous
  Country: US (occurrence: US)
  Receive Date: 20140524
  Receipt Date: 20140524
  Transmission Date: 20141212
  Serious: No
  Sender: FDA-Public Use
  Company Number: US-SA-2013SA122880

PATIENT
  Age: 65 Year
  Sex: Male

DRUGS (4)
  1. LANTUS SOLOSTAR [Suspect]
     Route: 051
  2. LANTUS SOLOSTAR [Suspect]
     Dosage: DOSE:10 UNIT(S)
     Route: 051
     Dates: start: 20131121
  3. SOLOSTAR [Concomitant]
     Dates: start: 20131121
  4. SOLOSTAR [Concomitant]

REACTIONS (3)
  - Abdominal distension [Unknown]
  - Blood glucose increased [Unknown]
  - Drug ineffective [Unknown]
